FAERS Safety Report 16735854 (Version 3)
Quarter: 2019Q3

REPORT INFORMATION
  Report Type: Spontaneous
  Country: US (occurrence: US)
  Receive Date: 20190823
  Receipt Date: 20190909
  Transmission Date: 20191005
  Serious: No
  Sender: FDA-Public Use
  Company Number: US-PFIZER INC-2019359661

PATIENT
  Age: 46 Year
  Sex: Male
  Weight: 83.91 kg

DRUGS (1)
  1. HYDROMORPHONE HYDROCHLORIDE. [Suspect]
     Active Substance: HYDROMORPHONE HYDROCHLORIDE
     Indication: PAIN
     Dosage: UNK

REACTIONS (3)
  - Pruritus [Unknown]
  - Skin injury [Unknown]
  - Malaise [Unknown]

NARRATIVE: CASE EVENT DATE: 2003
